FAERS Safety Report 6457128-4 (Version None)
Quarter: 2009Q4

REPORT INFORMATION
  Report Type: 
  Country: None (occurrence: None)
  Receive Date: 20091125
  Receipt Date: 20091118
  Transmission Date: 20100525
  Serious: Yes (Hospitalization)
  Sender: FDA-Public Use
  Company Number: B0605629A

PATIENT
  Age: 71 Year
  Sex: Female

DRUGS (7)
  1. CLAMOXYL [Suspect]
     Indication: TOOTH EXTRACTION
     Dosage: 1G PER DAY
     Route: 048
     Dates: start: 20091016, end: 20091019
  2. DOLIPRANE [Suspect]
     Indication: PAIN
     Dosage: 1G PER DAY
     Route: 065
     Dates: start: 20091016, end: 20091019
  3. ZONDAR [Concomitant]
  4. CYCLADOL [Concomitant]
  5. LANSOPRAZOLE [Concomitant]
  6. PAROXETINE [Concomitant]
  7. LOCAL ANESTHESIA [Concomitant]
     Indication: TOOTH EXTRACTION
     Dates: start: 20091016, end: 20091016

REACTIONS (5)
  - CONDITION AGGRAVATED [None]
  - INFLAMMATION [None]
  - OROPHARYNGEAL DISCOMFORT [None]
  - PRURITUS [None]
  - RASH MACULO-PAPULAR [None]
